FAERS Safety Report 9846566 (Version 1)
Quarter: 2014Q1

REPORT INFORMATION
  Report Type: Spontaneous
  Country: CA (occurrence: CA)
  Receive Date: 20140127
  Receipt Date: 20140127
  Transmission Date: 20141002
  Serious: Yes (Hospitalization)
  Sender: FDA-Public Use
  Company Number: CA-GLAXOSMITHKLINE-A1057131A

PATIENT
  Sex: Female
  Weight: 55.9 kg

DRUGS (8)
  1. FLOLAN [Suspect]
     Indication: PULMONARY ARTERIAL HYPERTENSION
     Dosage: 56NGKM UNKNOWN
     Route: 065
     Dates: start: 20000120
  2. FLOLAN DILUENT [Suspect]
     Indication: PULMONARY ARTERIAL HYPERTENSION
     Route: 065
     Dates: start: 20000120
  3. PREDNISONE [Concomitant]
  4. ELAVIL [Concomitant]
  5. ASPIRIN [Concomitant]
  6. LOSEC [Concomitant]
  7. UNKNOWN MEDICATION [Concomitant]
  8. RISEDRONATE [Concomitant]

REACTIONS (3)
  - Malaise [Not Recovered/Not Resolved]
  - Local swelling [Not Recovered/Not Resolved]
  - Diarrhoea [Not Recovered/Not Resolved]
